FAERS Safety Report 24462399 (Version 4)
Quarter: 2025Q1

REPORT INFORMATION
  Report Type: Spontaneous
  Country: US (occurrence: US)
  Receive Date: 20241018
  Receipt Date: 20250320
  Transmission Date: 20250409
  Serious: Yes (Other)
  Sender: UCB
  Company Number: US-UCBSA-2024035257

PATIENT
  Sex: Female

DRUGS (2)
  1. BIMZELX [Suspect]
     Active Substance: BIMEKIZUMAB-BKZX
     Indication: Hidradenitis
     Dosage: 320 MILLIGRAM, EV 4 WEEKS
     Route: 058
     Dates: start: 202405
  2. BIMZELX [Suspect]
     Active Substance: BIMEKIZUMAB-BKZX
     Indication: Off label use
     Dosage: 320 MILLIGRAM, EV 8 WEEKS
     Route: 058

REACTIONS (6)
  - Hidradenitis [Unknown]
  - General physical condition abnormal [Unknown]
  - Contusion [Unknown]
  - Skin discolouration [Unknown]
  - Drug ineffective for unapproved indication [Unknown]
  - Off label use [Unknown]
